FAERS Safety Report 10194323 (Version 3)
Quarter: 2014Q2

REPORT INFORMATION
  Report Type: Report from Study
  Country: US (occurrence: US)
  Receive Date: 20140526
  Receipt Date: 20140606
  Transmission Date: 20141212
  Serious: Yes (Hospitalization)
  Sender: FDA-Public Use
  Company Number: US-BIOGENIDEC-2014BI046202

PATIENT
  Age: 57 Year
  Sex: Female

DRUGS (12)
  1. TYSABRI [Suspect]
     Indication: MULTIPLE SCLEROSIS
     Route: 042
     Dates: start: 20111004, end: 20140407
  2. ESTROVEN [Concomitant]
  3. CYMBALTA [Concomitant]
  4. ZINC [Concomitant]
  5. VISION FORMULA [Concomitant]
  6. IRON [Concomitant]
  7. VERAPAMIL [Concomitant]
  8. FENTOIN [Concomitant]
  9. POTASSIUM [Concomitant]
  10. FISH OIL [Concomitant]
  11. CALCIUM AND VITAMIN D [Concomitant]
  12. MULTIVITAMIN [Concomitant]

REACTIONS (4)
  - Pelvic fracture [Not Recovered/Not Resolved]
  - Ankle fracture [Not Recovered/Not Resolved]
  - Fall [Recovered/Resolved]
  - Hypoaesthesia [Unknown]
